FAERS Safety Report 8888617 (Version 2)
Quarter: 2015Q3

REPORT INFORMATION
  Report Type: Report from Study
  Country: US (occurrence: US)
  Receive Date: 20121106
  Receipt Date: 20150819
  Transmission Date: 20151125
  Serious: Yes (Other)
  Sender: FDA-Public Use
  Company Number: US-ROCHE-1138053

PATIENT
  Sex: Female

DRUGS (2)
  1. NUTROPIN AQ [Suspect]
     Active Substance: SOMATROPIN
     Indication: EMPTY SELLA SYNDROME
     Dosage: INDICATION: OTHER DISORDERS OF THE PITUITARY AND OTHER SYNDROMES OF DIENCEPHALOHYPOPHYSEAL ORIGI
     Route: 058
     Dates: start: 19990401
  2. NUTROPIN AQ [Suspect]
     Active Substance: SOMATROPIN
     Route: 058

REACTIONS (3)
  - Loss of consciousness [Unknown]
  - Head injury [Unknown]
  - Malaise [Unknown]
